FAERS Safety Report 7771817-0 (Version None)
Quarter: 2011Q3

REPORT INFORMATION
  Report Type: 
  Country: None (occurrence: None)
  Receive Date: 20110920
  Receipt Date: 20110914
  Transmission Date: 20111222
  Serious: Yes (Hospitalization)
  Sender: FDA-Public Use
  Company Number: 1000023222

PATIENT
  Age: 56 Year
  Sex: Female

DRUGS (4)
  1. ASPIRIN [Suspect]
     Dosage: 100 MG (100 MG, 1 IN 1 D)
  2. HORMONE REPLACEMENT THERAPY [Concomitant]
  3. LOSARTAN POTASSIUM [Concomitant]
  4. DILTIAZEM [Suspect]
     Dosage: (1 IN 12 HR)

REACTIONS (19)
  - DEHYDRATION [None]
  - HEPATIC STEATOSIS [None]
  - ARTHRALGIA [None]
  - HAEMORRHAGIC HEPATIC CYST [None]
  - BLEEDING TIME PROLONGED [None]
  - ABNORMAL FAECES [None]
  - ASTHENIA [None]
  - MYALGIA [None]
  - CHILLS [None]
  - BLOOD PRESSURE SYSTOLIC INCREASED [None]
  - PALLOR [None]
  - HEPATIC HAEMATOMA [None]
  - MALAISE [None]
  - ABDOMINAL DISTENSION [None]
  - NAUSEA [None]
  - OXYGEN SATURATION DECREASED [None]
  - DYSPEPSIA [None]
  - RESPIRATORY RATE INCREASED [None]
  - ABDOMINAL PAIN [None]
